FAERS Safety Report 9735361 (Version 2)
Quarter: 2013Q4

REPORT INFORMATION
  Report Type: Spontaneous
  Country: TR (occurrence: TR)
  Receive Date: 20131206
  Receipt Date: 20131206
  Transmission Date: 20140711
  Serious: Yes (Other)
  Sender: FDA-Public Use
  Company Number: TR-NOVOPROD-388531

PATIENT
  Sex: Female
  Weight: 70 kg

DRUGS (3)
  1. NOVORAPID FLEXPEN [Suspect]
     Indication: GESTATIONAL DIABETES
     Dosage: 24 U, QD
     Route: 058
     Dates: start: 20130828, end: 20131022
  2. ELEVIT                             /01730301/ [Concomitant]
     Indication: VITAMIN SUPPLEMENTATION
     Dosage: 1 PER DAY
     Route: 048
     Dates: start: 201303
  3. FERROSANOL [Concomitant]
     Indication: MINERAL SUPPLEMENTATION
     Dosage: 1 CAPS, QD
     Route: 048
     Dates: start: 201303

REACTIONS (2)
  - Vaginal haemorrhage [Unknown]
  - Pregnancy [Unknown]
